FAERS Safety Report 7831505-9 (Version None)
Quarter: 2011Q4

REPORT INFORMATION
  Report Type: 
  Country: None (occurrence: None)
  Receive Date: 20111021
  Receipt Date: 20111021
  Transmission Date: 20120403
  Serious: Yes (Other)
  Sender: FDA-Public Use
  Company Number: None

PATIENT
  Age: 44 Year
  Sex: Male
  Weight: 127 kg

DRUGS (2)
  1. IBUPROFEN [Concomitant]
  2. TRAMADOL HYDROCHLORIDE [Suspect]
     Indication: CONTUSION
     Dosage: 1 TABLET
     Route: 048
     Dates: start: 20111019, end: 20111020

REACTIONS (4)
  - PSYCHOMOTOR HYPERACTIVITY [None]
  - HAIR DISORDER [None]
  - PAIN [None]
  - HYPERSENSITIVITY [None]
